FAERS Safety Report 11220991 (Version 1)
Quarter: 2015Q2

REPORT INFORMATION
  Report Type: Spontaneous
  Country: FR (occurrence: FR)
  Receive Date: 20150626
  Receipt Date: 20150626
  Transmission Date: 20150821
  Serious: Yes (Death, Other)
  Sender: FDA-Public Use
  Company Number: FR-SA-2015SA090120

PATIENT
  Age: 68 Year
  Sex: Male
  Weight: 82.4 kg

DRUGS (15)
  1. LASILIX [Concomitant]
     Active Substance: FUROSEMIDE
     Dosage: SCORED TABLET
     Route: 048
     Dates: start: 20150503
  2. XATRAL [Suspect]
     Active Substance: ALFUZOSIN
     Route: 048
     Dates: start: 20150503
  3. RIFAMPICINE [Suspect]
     Active Substance: RIFAMPIN
     Route: 065
     Dates: start: 20150507
  4. PARACETAMOL [Suspect]
     Active Substance: ACETAMINOPHEN
     Route: 065
  5. REVLIMID [Concomitant]
     Active Substance: LENALIDOMIDE
     Dosage: 5 MG
     Route: 048
  6. ZOVIRAX [Concomitant]
     Active Substance: ACYCLOVIR
     Route: 048
  7. AMOXICILLIN. [Suspect]
     Active Substance: AMOXICILLIN
     Route: 065
     Dates: start: 20150420
  8. PHOSPHONEUROS [Concomitant]
     Active Substance: CALCIUM PHOSPHATE, DIBASIC, ANHYDROUS\MAGNESIUM GLYCEROPHOSPHATE\PHOSPHORIC ACID\SODIUM PHOSPHATE, DIBASIC
     Dosage: ORAL DROPS, SOLUTION
     Route: 048
  9. NORSET [Suspect]
     Active Substance: MIRTAZAPINE
     Route: 048
     Dates: start: 20150503
  10. SMOFKABIVEN [Concomitant]
     Active Substance: UNSPECIFIED INGREDIENT
     Dosage: 500 CC
     Route: 042
  11. GLUCOSE [Concomitant]
     Active Substance: DEXTROSE
     Dosage: 5% IV 500 CC/24 HOURS
     Route: 042
  12. N-ACETYLCYSTEINE [Concomitant]
     Active Substance: ACETYLCYSTEINE
     Route: 042
  13. NEODEX [Concomitant]
     Active Substance: DEXAMETHASONE\NEOMYCIN
     Dosage: ON WEDNESDAY
     Route: 048
  14. PHOCYTAN [Concomitant]
     Active Substance: .ALPHA.-GLUCOSE-1-PHOSPHATE
     Dosage: 2 AMPOULES
     Route: 042
  15. INEXIUM [Concomitant]
     Active Substance: ESOMEPRAZOLE
     Dosage: 40 MG
     Route: 048

REACTIONS (2)
  - Acute hepatic failure [Fatal]
  - Acute kidney injury [Fatal]

NARRATIVE: CASE EVENT DATE: 20150510
